FAERS Safety Report 16289964 (Version 1)
Quarter: 2019Q2

REPORT INFORMATION
  Report Type: Spontaneous
  Country: SE (occurrence: SE)
  Receive Date: 20190509
  Receipt Date: 20190509
  Transmission Date: 20190711
  Serious: Yes (Other)
  Sender: FDA-Public Use
  Company Number: SE-BAYER-2019-088397

PATIENT
  Sex: Female

DRUGS (1)
  1. KYLEENA [Suspect]
     Active Substance: LEVONORGESTREL
     Dosage: 17.5 MCG/24HR, CONT
     Route: 015
     Dates: start: 20181107, end: 201904

REACTIONS (6)
  - Urinary tract infection [None]
  - Menorrhagia [None]
  - Coital bleeding [None]
  - Metrorrhagia [None]
  - Device expulsion [None]
  - Dyspareunia [None]
